FAERS Safety Report 5271429-7 (Version None)
Quarter: 2007Q1

REPORT INFORMATION
  Report Type: 
  Country: None (occurrence: None)
  Receive Date: 20061214
  Receipt Date: 20060912
  Transmission Date: 20070707
  Serious: Yes (Life-Threatening, Hospitalization, Disabling, Other)
  Sender: FDA-Public Use
  Company Number: 2005061413

PATIENT
  Age: 57 Year
  Sex: Female
  Weight: 68.9467 kg

DRUGS (8)
  1. BEXTRA [Suspect]
     Indication: ARTHRITIS
     Dosage: 10 MG (10 MG,1 IN 1 D),ORAL
     Route: 048
  2. VALSARTAN [Concomitant]
  3. DARVOCET-N 100 [Concomitant]
  4. METHOTREXATE [Concomitant]
  5. K-DUR 10 [Concomitant]
  6. LASIX [Concomitant]
  7. PROZAC [Concomitant]
  8. SYNTHROID [Concomitant]

REACTIONS (1)
  - ACUTE MYOCARDIAL INFARCTION [None]
